FAERS Safety Report 6930043-5 (Version None)
Quarter: 2010Q3

REPORT INFORMATION
  Report Type: 
  Country: None (occurrence: None)
  Receive Date: 20100818
  Receipt Date: 20100809
  Transmission Date: 20110219
  Serious: Yes (Other)
  Sender: FDA-Public Use
  Company Number: SV-TEVA-244308USA

PATIENT
  Age: 5 Year
  Sex: Male

DRUGS (14)
  1. PIMOZIDE TABLETS [Suspect]
     Indication: TOURETTE'S DISORDER
  2. PIMOZIDE TABLETS [Suspect]
     Dates: start: 20060901
  3. PIMOZIDE TABLETS [Suspect]
  4. PIMOZIDE TABLETS [Suspect]
     Dates: start: 20080201, end: 20080801
  5. PALIPERIDONE [Suspect]
     Indication: TIC
  6. PALIPERIDONE [Suspect]
  7. PALIPERIDONE [Suspect]
  8. PALIPERIDONE [Suspect]
  9. SERTRALINE HYDROCHLORIDE [Suspect]
     Indication: TOURETTE'S DISORDER
  10. RISPERIDONE [Suspect]
     Indication: TOURETTE'S DISORDER
     Dates: start: 20081101
  11. RISPERIDONE [Suspect]
  12. REBOXETINE [Concomitant]
     Indication: ATTENTION DEFICIT/HYPERACTIVITY DISORDER
     Dates: start: 20071201
  13. HALOPERIDOL [Concomitant]
     Indication: TIC
  14. ATOMOXETINE HCL [Concomitant]
     Indication: ATTENTION DEFICIT/HYPERACTIVITY DISORDER

REACTIONS (10)
  - FATIGUE [None]
  - HYPERHIDROSIS [None]
  - INCREASED APPETITE [None]
  - OCULOGYRIC CRISIS [None]
  - OFF LABEL USE [None]
  - ORTHOSTATIC HYPOTENSION [None]
  - SOMNOLENCE [None]
  - SWELLING FACE [None]
  - TIC [None]
  - WEIGHT INCREASED [None]
